FAERS Safety Report 9605942 (Version 1)
Quarter: 2013Q4

REPORT INFORMATION
  Report Type: Spontaneous
  Country: US (occurrence: US)
  Receive Date: 20131008
  Receipt Date: 20131008
  Transmission Date: 20140711
  Serious: Yes (Life-Threatening)
  Sender: FDA-Public Use
  Company Number: CHPA2013US015217

PATIENT
  Sex: Male

DRUGS (1)
  1. NODOZ [Suspect]
     Indication: SOMNOLENCE
     Dosage: UNK, UNK

REACTIONS (6)
  - Terminal state [Unknown]
  - Fatigue [Unknown]
  - Somnolence [Unknown]
  - Disease recurrence [Unknown]
  - Therapeutic response unexpected [Unknown]
  - Wrong technique in drug usage process [Unknown]
